FAERS Safety Report 7213732-7 (Version None)
Quarter: 2011Q1

REPORT INFORMATION
  Report Type: 
  Country: None (occurrence: None)
  Receive Date: 20110106
  Receipt Date: 20101224
  Transmission Date: 20110831
  Serious: Yes (Hospitalization)
  Sender: FDA-Public Use
  Company Number: AU-MYLANLABS-2011S1000031

PATIENT
  Age: 26 Year
  Sex: Male

DRUGS (11)
  1. MEROPENEM [Suspect]
     Indication: ORGANISING PNEUMONIA
     Route: 065
  2. DEXAMETHASONE [Suspect]
     Indication: IMMUNOSUPPRESSION
     Route: 065
  3. FLUCONAZOLE [Concomitant]
     Indication: ORGANISING PNEUMONIA
     Route: 065
  4. SIMULECT [Suspect]
     Indication: IMMUNOSUPPRESSION
     Dosage: CICLOSPORIN-SPARING AGENT; ADMINISTERED ON DAYS 1 AND 5
     Route: 065
  5. AMPHOTERICIN B [Concomitant]
     Indication: PROPHYLAXIS
     Route: 055
  6. COTRIM [Suspect]
     Indication: ANTIFUNGAL PROPHYLAXIS
     Route: 065
  7. CASPOFUNGIN [Concomitant]
     Indication: ASPERGILLOSIS
     Route: 065
  8. CYCLOSPORINE [Suspect]
     Indication: IMMUNOSUPPRESSION
     Dosage: TARGET SERUM TROUGH CONCENTRATIONS OF 300-350 MCG/L
     Route: 065
  9. TACROLIMUS [Suspect]
     Indication: IMMUNOSUPPRESSION
     Dosage: TARGET SERUM COCNENTRATION 10-15MCG/L
     Route: 065
  10. VALGANCICLOVIR HCL [Concomitant]
     Indication: PROPHYLAXIS
     Route: 065
  11. CIPROFLOXACIN [Suspect]
     Indication: ORGANISING PNEUMONIA
     Route: 065

REACTIONS (4)
  - PSEUDOMONAS INFECTION [None]
  - OSTEOMYELITIS FUNGAL [None]
  - CANDIDA PNEUMONIA [None]
  - CANDIDIASIS [None]
